FAERS Safety Report 19876923 (Version 1)
Quarter: 2021Q3

REPORT INFORMATION
  Report Type: Spontaneous
  Country: FR (occurrence: FR)
  Receive Date: 20210923
  Receipt Date: 20210923
  Transmission Date: 20211014
  Serious: Yes (Death, Other)
  Sender: FDA-Public Use
  Company Number: FR-TAKEDA-2021TUS058956

PATIENT
  Age: 40 Year
  Sex: Male

DRUGS (4)
  1. LANSOPRAZOLE. [Suspect]
     Active Substance: LANSOPRAZOLE
     Indication: PROPHYLAXIS AGAINST GASTROINTESTINAL ULCER
     Dosage: UNK
     Route: 048
     Dates: start: 202107, end: 20210821
  2. NAPROXENE [Suspect]
     Active Substance: NAPROXEN
     Indication: GOUT
     Dosage: UNK
     Route: 048
     Dates: start: 202107, end: 20210821
  3. COLCHIMAX (COLCHICINE/PAPAVER SOMNIFERUM POWDER/TIEMONIUM METHYLSULPHATE) [Suspect]
     Active Substance: COLCHICINE\OPIUM\TIEMONIUM METHYLSULFATE
     Indication: GOUT
     Dosage: UNK
     Route: 048
     Dates: start: 202107, end: 20210821
  4. ADENURIC [Suspect]
     Active Substance: FEBUXOSTAT
     Indication: GOUT
     Dosage: UNK
     Route: 048
     Dates: start: 202107, end: 20210821

REACTIONS (2)
  - Product use in unapproved indication [Fatal]
  - Multiple organ dysfunction syndrome [Fatal]

NARRATIVE: CASE EVENT DATE: 202107
